FAERS Safety Report 13676214 (Version 1)
Quarter: 2017Q2

REPORT INFORMATION
  Report Type: Report from Study
  Country: US (occurrence: US)
  Receive Date: 20170622
  Receipt Date: 20170622
  Transmission Date: 20170830
  Serious: No
  Sender: FDA-Public Use
  Company Number: PHHY2017US089979

PATIENT
  Age: 49 Year
  Sex: Male

DRUGS (1)
  1. LAMISIL [Suspect]
     Active Substance: TERBINAFINE HYDROCHLORIDE
     Indication: TINEA PEDIS
     Dosage: UNK UNK, BID ( THIN LAYER SPRAYED ONTO FOOT)
     Route: 065
     Dates: end: 201703

REACTIONS (1)
  - Application site pain [Recovered/Resolved]
